FAERS Safety Report 5247336-2 (Version None)
Quarter: 2007Q1

REPORT INFORMATION
  Report Type: 
  Country: None (occurrence: None)
  Receive Date: 20070223
  Receipt Date: 20070223
  Transmission Date: 20070707
  Serious: Yes (Life-Threatening, Other)
  Sender: FDA-Public Use
  Company Number: None

PATIENT
  Age: 49 Year
  Sex: Female
  Weight: 67.1 kg

DRUGS (5)
  1. IODIXANOL 320 MGI/ML AMERSHAM HEALTH [Suspect]
     Indication: SCAN WITH CONTRAST
     Dosage: 150ML  ONCE IV
     Route: 042
     Dates: start: 20061012, end: 20061012
  2. LISINOPRIL [Suspect]
     Indication: HYPERTENSION
     Dosage: 40MG  DAILY PO
     Route: 048
  3. TOPROL-XL [Concomitant]
  4. METFORMIN HCL [Concomitant]
  5. POTASSIUM CHLORIDE [Concomitant]

REACTIONS (10)
  - ANGIOEDEMA [None]
  - ARTERIOSCLEROSIS [None]
  - CONTRAST MEDIA REACTION [None]
  - DYSPHONIA [None]
  - EAR PAIN [None]
  - LIP PAIN [None]
  - LIP SWELLING [None]
  - NEPHROLITHIASIS [None]
  - PARAESTHESIA [None]
  - SPLENIC INFARCTION [None]
